FAERS Safety Report 8973692 (Version 1)
Quarter: 2012Q4

REPORT INFORMATION
  Report Type: 
  Country: RU (occurrence: RU)
  Receive Date: 20121218
  Receipt Date: 20121218
  Transmission Date: 20130627
  Serious: Yes (Hospitalization)
  Sender: FDA-Public Use
  Company Number: RU-ALEXION PHARMACEUTICALS INC.-A201202444

PATIENT
  Age: 10 Year
  Sex: Female

DRUGS (2)
  1. SOLIRIS 300MG [Suspect]
     Indication: HAEMOLYTIC URAEMIC SYNDROME
     Dosage: 600 mg, qw
     Route: 042
     Dates: start: 20120707, end: 20120714
  2. SOLIRIS 300MG [Suspect]
     Dosage: 600 mg, q2w
     Route: 042
     Dates: start: 20120728

REACTIONS (1)
  - Lower respiratory tract infection [Not Recovered/Not Resolved]
